FAERS Safety Report 10877843 (Version 2)
Quarter: 2015Q1

REPORT INFORMATION
  Report Type: Spontaneous
  Country: BR (occurrence: BR)
  Receive Date: 20150302
  Receipt Date: 20150312
  Transmission Date: 20150721
  Serious: No
  Sender: FDA-Public Use
  Company Number: BR-PFIZER INC-2015071883

PATIENT
  Sex: Female

DRUGS (1)
  1. FIBRASE [Suspect]
     Active Substance: CHLORAMPHENICOL
     Indication: SKIN WOUND
     Dosage: UNK
     Dates: start: 2013

REACTIONS (1)
  - No adverse event [Unknown]
